FAERS Safety Report 6452947-2 (Version None)
Quarter: 2009Q4

REPORT INFORMATION
  Report Type: 
  Country: None (occurrence: None)
  Receive Date: 20091117
  Receipt Date: 20091109
  Transmission Date: 20100525
  Serious: Yes (Other)
  Sender: FDA-Public Use
  Company Number: 2009JP006679

PATIENT
  Sex: Male

DRUGS (2)
  1. PROGRAF [Suspect]
     Dosage: 10 MG, /D, ORAL
     Route: 048
  2. PREDNISOLONE [Suspect]
     Dosage: 15 MG, /D

REACTIONS (1)
  - PULMONARY INFARCTION [None]
